FAERS Safety Report 12566670 (Version 1)
Quarter: 2016Q3

REPORT INFORMATION
  Report Type: Spontaneous
  Country: IN (occurrence: IN)
  Receive Date: 20160718
  Receipt Date: 20160718
  Transmission Date: 20161109
  Serious: Yes (Death)
  Sender: FDA-Public Use
  Company Number: IN-PFIZER INC-2016342530

PATIENT
  Sex: Male
  Weight: 1.5 kg

DRUGS (10)
  1. ETHAMBUTOL [Suspect]
     Active Substance: ETHAMBUTOL HYDROCHLORIDE
     Indication: CONGENITAL TUBERCULOSIS
     Dosage: UNK
  2. AMIKACIN [Suspect]
     Active Substance: AMIKACIN
     Indication: CONGENITAL TUBERCULOSIS
     Dosage: UNK
  3. AMIKACIN [Suspect]
     Active Substance: AMIKACIN
     Dosage: UNK
  4. RIFAMPICIN [Suspect]
     Active Substance: RIFAMPIN
     Indication: CONGENITAL TUBERCULOSIS
     Dosage: UNK
  5. ISONIAZID. [Suspect]
     Active Substance: ISONIAZID
     Indication: CONGENITAL TUBERCULOSIS
     Dosage: UNK
  6. VANCOMYCIN HCL [Suspect]
     Active Substance: VANCOMYCIN HYDROCHLORIDE
     Indication: CONGENITAL TUBERCULOSIS
  7. LINEZOLID. [Suspect]
     Active Substance: LINEZOLID
     Indication: CONGENITAL TUBERCULOSIS
     Dosage: UNK
  8. PIPERACILLIN/TAZOBACTAM [Suspect]
     Active Substance: PIPERACILLIN SODIUM\TAZOBACTAM SODIUM
     Indication: CONGENITAL TUBERCULOSIS
     Dosage: UNK
  9. PYRAZINAMIDE. [Suspect]
     Active Substance: PYRAZINAMIDE
     Indication: CONGENITAL TUBERCULOSIS
     Dosage: UNK
  10. LEVOFLOXACIN. [Suspect]
     Active Substance: LEVOFLOXACIN
     Indication: CONGENITAL TUBERCULOSIS
     Dosage: UNK

REACTIONS (3)
  - Drug ineffective [Fatal]
  - Bronchopulmonary dysplasia [None]
  - Respiratory failure [None]
